FAERS Safety Report 8271813-3 (Version None)
Quarter: 2012Q2

REPORT INFORMATION
  Report Type: 
  Country: None (occurrence: None)
  Receive Date: 20120410
  Receipt Date: 20110627
  Transmission Date: 20120825
  Serious: No
  Sender: FDA-Public Use
  Company Number: US-BAUSCH-2011BL004181

PATIENT
  Sex: Male

DRUGS (3)
  1. POLYMYXIN B SULFATES AND TRIMETHOPRIM SULFATE [Suspect]
     Indication: ANTIBIOTIC PROPHYLAXIS
     Route: 047
     Dates: start: 20110501, end: 20110501
  2. METFORMIN HCL [Concomitant]
  3. LUCENTIS [Concomitant]

REACTIONS (2)
  - RHINORRHOEA [None]
  - LACRIMATION INCREASED [None]
